FAERS Safety Report 5853597-9 (Version None)
Quarter: 2008Q3

REPORT INFORMATION
  Report Type: 
  Country: None (occurrence: None)
  Receive Date: 20080822
  Receipt Date: 20080812
  Transmission Date: 20090109
  Serious: Yes (Other)
  Sender: FDA-Public Use
  Company Number: GB-JNJFOC-20080802777

PATIENT
  Age: 62 Year
  Sex: Male
  Weight: 129 kg

DRUGS (2)
  1. REMICADE [Suspect]
     Indication: RHEUMATOID ARTHRITIS
     Route: 042
  2. METHOTREXATE SODIUM [Concomitant]

REACTIONS (3)
  - ALVEOLITIS [None]
  - DYSPNOEA [None]
  - FIBROSIS [None]
